FAERS Safety Report 10196500 (Version 1)
Quarter: 2014Q2

REPORT INFORMATION
  Report Type: Spontaneous
  Country: US (occurrence: None)
  Receive Date: 20140523
  Receipt Date: 20140523
  Transmission Date: 20141212
  Serious: No
  Sender: FDA-Public Use
  Company Number: None

PATIENT
  Age: 48 Year
  Sex: Female

DRUGS (1)
  1. STELARA [Suspect]
     Indication: PSORIASIS
     Dosage: Q30D
     Route: 058
     Dates: start: 20131231, end: 20140410

REACTIONS (3)
  - Drug administration error [None]
  - Swelling [None]
  - Respiratory disorder [None]
